FAERS Safety Report 5216901-0 (Version None)
Quarter: 2007Q1

REPORT INFORMATION
  Report Type: 
  Country: None (occurrence: None)
  Receive Date: 20070124
  Receipt Date: 20070116
  Transmission Date: 20070707
  Serious: Yes (Other)
  Sender: FDA-Public Use
  Company Number: CA-JNJFOC-20070103352

PATIENT
  Sex: Female
  Weight: 87 kg

DRUGS (6)
  1. REMICADE [Suspect]
     Indication: GASTROINTESTINAL INFLAMMATION
     Route: 042
  2. REMICADE [Suspect]
     Indication: ANKYLOSING SPONDYLITIS
     Route: 042
  3. METHOTREXATE [Concomitant]
  4. CELEBREX [Concomitant]
  5. CYCLOBENZAPRINE HCL [Concomitant]
  6. SULFASALAZINE [Concomitant]

REACTIONS (4)
  - CARPAL TUNNEL SYNDROME [None]
  - DRUG INEFFECTIVE [None]
  - PARAESTHESIA [None]
  - TYPE IV HYPERSENSITIVITY REACTION [None]
